FAERS Safety Report 12757758 (Version 3)
Quarter: 2016Q4

REPORT INFORMATION
  Report Type: Report from Study
  Country: US (occurrence: US)
  Receive Date: 20160919
  Receipt Date: 20161010
  Transmission Date: 20170207
  Serious: Yes (Hospitalization, Other)
  Sender: FDA-Public Use
  Company Number: US-AMGEN-USASL2016125878

PATIENT

DRUGS (1)
  1. KYPROLIS [Suspect]
     Active Substance: CARFILZOMIB
     Indication: PLASMA CELL MYELOMA
     Dosage: 37.5 MG, ON D1,D2,D8,D9,D15,D16 Q 28 DAYS
     Route: 065

REACTIONS (6)
  - Upper limb fracture [Unknown]
  - Cystitis [Unknown]
  - Urinary tract infection [Unknown]
  - Blood glucose abnormal [Unknown]
  - Heart rate increased [Unknown]
  - Thrombocytopenia [Unknown]

NARRATIVE: CASE EVENT DATE: 201608
